FAERS Safety Report 21196437 (Version 1)
Quarter: 2022Q3

REPORT INFORMATION
  Report Type: Spontaneous
  Country: DE (occurrence: DE)
  Receive Date: 20220810
  Receipt Date: 20220810
  Transmission Date: 20221027
  Serious: Yes (Death, Hospitalization)
  Sender: FDA-Public Use
  Company Number: DE-NAPPMUNDI-GBR-2022-0100052

PATIENT
  Sex: Male

DRUGS (12)
  1. OXYCODONE HYDROCHLORIDE [Suspect]
     Active Substance: OXYCODONE HYDROCHLORIDE
     Indication: Cancer pain
     Dosage: UNK
     Route: 065
  2. NALOXONE HYDROCHLORIDE\OXYCODONE HYDROCHLORIDE [Suspect]
     Active Substance: NALOXONE HYDROCHLORIDE\OXYCODONE HYDROCHLORIDE
     Indication: Cancer pain
     Dosage: UNK (STRENGTH: 40/20 MG)
     Route: 048
     Dates: start: 20220614, end: 202207
  3. AMITRIPTYLINE [Concomitant]
     Active Substance: AMITRIPTYLINE
     Indication: Product used for unknown indication
     Dosage: 75 MILLIGRAM (2 AT BEDTIME)
  4. ATORVASTATIN [Concomitant]
     Active Substance: ATORVASTATIN
     Dosage: 40: 1 IN THE EVENING
  5. BIOLECTRA MAGNESIUM DIRECT [Concomitant]
     Dosage: 1 IN THE MORNING
  6. CARVEDILOL [Concomitant]
     Active Substance: CARVEDILOL
     Indication: Product used for unknown indication
     Dosage: 10 MILLIGRAM, BID (10 MG 1-1-0, 1 IN THE MORNING, 1 AT NOON)
  7. CELECOXIB [Concomitant]
     Active Substance: CELECOXIB
     Dosage: 200: IF NEEDED
  8. DEXAMETHASONE [Concomitant]
     Active Substance: DEXAMETHASONE
     Dosage: 4 MG: IF NEEDED
  9. ALUMINUM HYDROXIDE\MAGNESIUM HYDROXIDE [Concomitant]
     Active Substance: ALUMINUM HYDROXIDE\MAGNESIUM HYDROXIDE
     Dosage: AS NEEDED
  10. PANTOPRAZOLE SODIUM [Concomitant]
     Active Substance: PANTOPRAZOLE SODIUM
     Dosage: 40: 1 IN THE MORNING AND 1 IN THE EVENING
  11. PREGABALIN [Concomitant]
     Active Substance: PREGABALIN
     Indication: Product used for unknown indication
     Dosage: 50 MILLIGRAM (2 AT BEDTIME)
  12. HOMEOPATHICS [Concomitant]
     Active Substance: HOMEOPATHICS
     Dosage: 1 IN THE MORNING, 1 AT NOON, 1 AT NIGHT, AND AS NEEDED

REACTIONS (3)
  - Intestinal obstruction [Fatal]
  - Constipation [Unknown]
  - Product availability issue [Unknown]

NARRATIVE: CASE EVENT DATE: 20220701
